FAERS Safety Report 7934702-7 (Version None)
Quarter: 2011Q4

REPORT INFORMATION
  Report Type: 
  Country: None (occurrence: None)
  Receive Date: 20111122
  Receipt Date: 20111112
  Transmission Date: 20120403
  Serious: Yes (Other)
  Sender: FDA-Public Use
  Company Number: IR-SANOFI-AVENTIS-2011SA076193

PATIENT
  Age: 36 Year
  Sex: Female

DRUGS (1)
  1. ELOXATIN [Suspect]
     Indication: COLORECTAL CANCER
     Route: 042
     Dates: start: 20110928, end: 20110928

REACTIONS (2)
  - CYANOSIS [None]
  - ABDOMINAL PAIN [None]
